FAERS Safety Report 5791629-7 (Version None)
Quarter: 2008Q2

REPORT INFORMATION
  Report Type: 
  Country: None (occurrence: None)
  Receive Date: 20080618
  Receipt Date: 20080327
  Transmission Date: 20081010
  Serious: Yes (Other)
  Sender: FDA-Public Use
  Company Number: 200811972US

PATIENT
  Age: 65 Year
  Sex: Male
  Weight: 148.55 kg

DRUGS (9)
  1. LANTUS [Suspect]
     Indication: TYPE 2 DIABETES MELLITUS
     Dosage: 25 U SC
     Route: 058
     Dates: start: 20070101
  2. OPTICLIK [Suspect]
     Indication: TYPE 2 DIABETES MELLITUS
     Dates: start: 20070101
  3. METFORMIN HCL [Concomitant]
  4. PIOGLITAZONE [Concomitant]
  5. ASPIRIN [Concomitant]
  6. LISINOPRIL [Concomitant]
  7. PHENTERMINE [Concomitant]
  8. GLYBURIDE [Concomitant]
  9. CLOPIDOGREL (PLAVIX /01220701/) [Concomitant]

REACTIONS (3)
  - FEELING ABNORMAL [None]
  - GLYCOSYLATED HAEMOGLOBIN INCREASED [None]
  - HYPOGLYCAEMIA [None]
